FAERS Safety Report 14840981 (Version 1)
Quarter: 2018Q2

REPORT INFORMATION
  Report Type: Spontaneous
  Country: CZ (occurrence: CZ)
  Receive Date: 20180503
  Receipt Date: 20180503
  Transmission Date: 20180711
  Serious: Yes (Death)
  Sender: FDA-Public Use
  Company Number: CZ-ROCHE-2116557

PATIENT
  Age: 77 Year
  Sex: Female

DRUGS (8)
  1. BETAXA [Concomitant]
     Route: 065
  2. TRIPLIXAM [Concomitant]
     Active Substance: AMLODIPINE BESYLATE\INDAPAMIDE\PERINDOPRIL ARGININE
     Dosage: STRENGTH: 10MG/2.5MG/5MG
     Route: 048
  3. ACTILYSE [Suspect]
     Active Substance: ALTEPLASE
     Indication: CEREBROVASCULAR ACCIDENT
     Route: 048
     Dates: start: 20180330, end: 20180330
  4. PRAXBIND [Concomitant]
     Active Substance: IDARUCIZUMAB
  5. PRADAXA [Concomitant]
     Active Substance: DABIGATRAN ETEXILATE MESYLATE
     Indication: ATRIAL FIBRILLATION
  6. SORTIS [Concomitant]
     Active Substance: ATORVASTATIN
     Route: 048
  7. PRADAXA [Concomitant]
     Active Substance: DABIGATRAN ETEXILATE MESYLATE
     Indication: CEREBROVASCULAR ACCIDENT PROPHYLAXIS
     Dosage: 1-0-1
     Route: 048
     Dates: start: 201803
  8. NITROGLYCERIN. [Concomitant]
     Active Substance: NITROGLYCERIN
     Route: 048

REACTIONS (2)
  - Ischaemic stroke [Fatal]
  - Basilar artery occlusion [Fatal]

NARRATIVE: CASE EVENT DATE: 20180330
